FAERS Safety Report 19768125 (Version 1)
Quarter: 2021Q3

REPORT INFORMATION
  Report Type: Spontaneous
  Country: IT (occurrence: IT)
  Receive Date: 20210831
  Receipt Date: 20210831
  Transmission Date: 20211014
  Serious: Yes (Hospitalization)
  Sender: FDA-Public Use
  Company Number: IT-TEVA-2021-IT-1946203

PATIENT
  Age: 34 Year
  Sex: Female

DRUGS (1)
  1. PACLITAXEL. [Suspect]
     Active Substance: PACLITAXEL
     Indication: BREAST CANCER
     Dosage: 140 MG
     Route: 042
     Dates: start: 20210609, end: 20210609

REACTIONS (3)
  - Erythema [Recovered/Resolved]
  - Hypoxia [Recovered/Resolved]
  - Bronchostenosis [Recovered/Resolved]

NARRATIVE: CASE EVENT DATE: 20210609
